FAERS Safety Report 17997123 (Version 5)
Quarter: 2021Q1

REPORT INFORMATION
  Report Type: Report from Study
  Country: CA (occurrence: CA)
  Receive Date: 20200708
  Receipt Date: 20210211
  Transmission Date: 20210419
  Serious: Yes (Other)
  Sender: FDA-Public Use
  Company Number: CA-JNJFOC-20200149380

PATIENT
  Age: 17 Year
  Sex: Male
  Weight: 121.9 kg

DRUGS (3)
  1. REMICADE [Suspect]
     Active Substance: INFLIXIMAB
     Indication: CROHN^S DISEASE
     Route: 042
     Dates: start: 20080615
  2. REMICADE [Suspect]
     Active Substance: INFLIXIMAB
     Route: 042
     Dates: start: 20080615
  3. REMICADE [Suspect]
     Active Substance: INFLIXIMAB
     Route: 042
     Dates: start: 20080615

REACTIONS (7)
  - Off label use [Unknown]
  - Rectal abscess [Recovered/Resolved]
  - Groin abscess [Recovered/Resolved]
  - Product use issue [Unknown]
  - Crohn^s disease [Recovered/Resolved]
  - Skin ulcer [Recovered/Resolved]
  - Abscess limb [Recovered/Resolved]

NARRATIVE: CASE EVENT DATE: 20080615
